FAERS Safety Report 5409981-0 (Version None)
Quarter: 2007Q3

REPORT INFORMATION
  Report Type: 
  Country: None (occurrence: None)
  Receive Date: 20070809
  Receipt Date: 20070731
  Transmission Date: 20080115
  Serious: Yes (Other)
  Sender: FDA-Public Use
  Company Number: ZA-ABBOTT-07P-143-0365040-00

PATIENT
  Age: 33 Year
  Sex: Female

DRUGS (7)
  1. ULTANE [Suspect]
     Indication: ANAESTHESIA
     Route: 055
     Dates: start: 20070305, end: 20070305
  2. TRAMADOL HCL [Concomitant]
     Indication: ANALGESIA
  3. UNSPECIFIED ANTI-EPILEPTIC MEDICATION [Concomitant]
     Indication: EPILEPSY
  4. PROPOFOL [Concomitant]
     Indication: DRUG USE FOR UNKNOWN INDICATION
  5. VECURONIUM BROMIDE [Concomitant]
     Indication: DRUG USE FOR UNKNOWN INDICATION
  6. REMIFENTANIL HYDROCHLORIDE [Concomitant]
     Indication: DRUG USE FOR UNKNOWN INDICATION
  7. OXYGEN [Concomitant]
     Indication: DRUG USE FOR UNKNOWN INDICATION

REACTIONS (3)
  - HEMIPLEGIA [None]
  - MUSCULAR WEAKNESS [None]
  - PARESIS [None]
